FAERS Safety Report 21068161 (Version 4)
Quarter: 2022Q4

REPORT INFORMATION
  Report Type: Spontaneous
  Country: US (occurrence: US)
  Receive Date: 20220712
  Receipt Date: 20221103
  Transmission Date: 20230113
  Serious: No
  Sender: FDA-Public Use
  Company Number: US-BRISTOL-MYERS SQUIBB COMPANY-2022-071955

PATIENT
  Age: 82 Year
  Sex: Male

DRUGS (3)
  1. REVLIMID [Suspect]
     Active Substance: LENALIDOMIDE
     Indication: Lymphadenopathy
     Dosage: FREQ:  TAKE 1 CAPSULE BY MOUTH ONCE DAILY ON DAYS 1-21 OF 28 DAY CYCLE
     Route: 048
     Dates: start: 20220609
  2. REVLIMID [Suspect]
     Active Substance: LENALIDOMIDE
     Dosage: TAKE 1 CAPSULE BY MOUTH EVERY OTHER DAY FOR 28 DAYS
     Route: 048
     Dates: start: 20220609
  3. REVLIMID [Suspect]
     Active Substance: LENALIDOMIDE
     Route: 065

REACTIONS (9)
  - Platelet count decreased [Unknown]
  - Product dose omission issue [Unknown]
  - Fatigue [Unknown]
  - Balance disorder [Unknown]
  - Confusional state [Unknown]
  - Blood pressure systolic decreased [Unknown]
  - Intentional product use issue [Unknown]
  - Product dose omission issue [Unknown]
  - Full blood count decreased [Unknown]
